FAERS Safety Report 6978716-2 (Version None)
Quarter: 2010Q3

REPORT INFORMATION
  Report Type: 
  Country: None (occurrence: None)
  Receive Date: 20100913
  Receipt Date: 20100902
  Transmission Date: 20110219
  Serious: Yes (Other)
  Sender: FDA-Public Use
  Company Number: B0671817A

PATIENT
  Sex: Female
  Weight: 76 kg

DRUGS (5)
  1. FLOLAN [Suspect]
     Route: 065
     Dates: start: 20091015
  2. BOSENTAN [Concomitant]
     Dosage: 125MG TWICE PER DAY
     Route: 048
     Dates: start: 20091028
  3. WARFARIN SODIUM [Concomitant]
     Route: 048
     Dates: start: 20090701
  4. NORINYL 1+35 28-DAY [Concomitant]
     Route: 065
     Dates: start: 20091101
  5. AUGMENTIN '125' [Concomitant]
     Route: 048
     Dates: start: 20100815

REACTIONS (4)
  - DIZZINESS [None]
  - DYSPNOEA [None]
  - MALAISE [None]
  - UNDERDOSE [None]
